FAERS Safety Report 9054532 (Version 2)
Quarter: 2013Q1

REPORT INFORMATION
  Report Type: Spontaneous
  Country: JP (occurrence: JP)
  Receive Date: 20130208
  Receipt Date: 20130220
  Transmission Date: 20140127
  Serious: Yes (Hospitalization)
  Sender: FDA-Public Use
  Company Number: JP-PFIZER INC-2013051315

PATIENT
  Age: 70 Year
  Sex: Female

DRUGS (1)
  1. LYRICA [Suspect]
     Indication: LUMBAR SPINAL STENOSIS
     Dosage: 150 MG, 1X/DAY
     Route: 048

REACTIONS (1)
  - Schizophrenia [Unknown]
